FAERS Safety Report 8448521-9 (Version None)
Quarter: 2012Q2

REPORT INFORMATION
  Report Type: 
  Country: None (occurrence: None)
  Receive Date: 20120619
  Receipt Date: 20120612
  Transmission Date: 20120825
  Serious: Yes (Other)
  Sender: FDA-Public Use
  Company Number: US-PFIZER INC-2012104979

PATIENT
  Sex: Female

DRUGS (6)
  1. LATANOPROST [Suspect]
     Dosage: UNK
  2. PILOCARPINE HCL [Suspect]
     Dosage: UNK
  3. COMBIGAN [Suspect]
     Dosage: UNK, EACH EYE 2X/DAY
  4. XALATAN [Suspect]
     Dosage: UNK, EACH EYE EVERY NIGHT AT BED TIME
  5. AZOPT [Suspect]
     Dosage: UNK, EACH EYE 1X/DAY
  6. LUMIGAN [Suspect]
     Dosage: UNK, EACH EYE EVERY NIGHT AT BED TIME

REACTIONS (7)
  - DYSPNOEA [None]
  - SWELLING [None]
  - EAR DISCOMFORT [None]
  - NASAL OEDEMA [None]
  - PAIN [None]
  - EAR PAIN [None]
  - HEADACHE [None]
